FAERS Safety Report 4588636-9 (Version None)
Quarter: 2005Q1

REPORT INFORMATION
  Report Type: 
  Country: None (occurrence: None)
  Receive Date: 20050222
  Receipt Date: 20050207
  Transmission Date: 20050727
  Serious: Yes (Other)
  Sender: FDA-Public Use
  Company Number: 2005-01-2207

PATIENT
  Age: 39 Year
  Sex: Male
  Weight: 78 kg

DRUGS (6)
  1. INTEGRILIN [Suspect]
     Indication: CHEST PAIN
     Route: 042
     Dates: start: 20050126, end: 20050127
  2. LOVENOX [Suspect]
     Dates: start: 20050126, end: 20050127
  3. PLAVIX [Suspect]
     Dates: start: 20050127
  4. ASPIRIN [Suspect]
     Dates: start: 20050126, end: 20050127
  5. FLUOXETINE [Concomitant]
  6. TRAZODONE [Concomitant]

REACTIONS (1)
  - CORONARY ARTERY THROMBOSIS [None]
